FAERS Safety Report 7331379-9 (Version None)
Quarter: 2011Q1

REPORT INFORMATION
  Report Type: 
  Country: None (occurrence: None)
  Receive Date: 20110228
  Receipt Date: 20110228
  Transmission Date: 20110831
  Serious: No
  Sender: FDA-Public Use
  Company Number: None

PATIENT
  Age: 63 Year
  Sex: Female
  Weight: 55.3388 kg

DRUGS (8)
  1. SINGULAIR [Concomitant]
  2. ALPRAZOLAM [Concomitant]
  3. CYMBALTA [Concomitant]
  4. OMEPRAZOLE [Concomitant]
  5. RECLAST [Suspect]
     Indication: OSTEOPOROSIS
     Dosage: 5MG ONE-TIME DOSE FIRST DOSE IV DRIP
     Route: 041
     Dates: start: 20110216, end: 20110216
  6. LIPITOR [Concomitant]
  7. RITALIN [Concomitant]
  8. HYDROCHLOROTHIAZIDE [Concomitant]

REACTIONS (3)
  - PHOTOSENSITIVITY REACTION [None]
  - PAIN [None]
  - IRIDOCYCLITIS [None]
